FAERS Safety Report 10219748 (Version 2)
Quarter: 2014Q2

REPORT INFORMATION
  Report Type: Spontaneous
  Country: US (occurrence: US)
  Receive Date: 20140605
  Receipt Date: 20140613
  Transmission Date: 20141212
  Serious: Yes (Death)
  Sender: FDA-Public Use
  Company Number: US-B.I. PHARMACEUTICALS,INC./RIDGEFIELD-2014-BI-25055BP

PATIENT
  Age: 60 Year
  Sex: Male

DRUGS (12)
  1. SPIRIVA [Suspect]
     Indication: CHRONIC OBSTRUCTIVE PULMONARY DISEASE
     Dosage: 18 MCG
     Route: 055
     Dates: start: 201402
  2. COMBIVENT [Suspect]
     Indication: CHRONIC OBSTRUCTIVE PULMONARY DISEASE
     Dosage: STRENGTH: 20 MCG / 100 MCG; DAILY DOSE: 80 MCG/400 MCG
     Route: 055
     Dates: start: 201402
  3. SYMBICORT [Concomitant]
     Dosage: (INHALATION AEROSOL)
     Route: 055
  4. NYSTATIN [Concomitant]
     Route: 048
  5. ZOLOFT [Concomitant]
     Route: 048
  6. AMITRIPTYLINE [Concomitant]
     Route: 048
  7. HYDROCODONE [Concomitant]
     Route: 048
  8. AMBIEN [Concomitant]
     Route: 048
  9. CLONIDINE [Concomitant]
     Route: 048
  10. MECLIZINE [Concomitant]
     Route: 048
  11. SIMVASTATIN [Concomitant]
     Route: 048
  12. ONDANSETRON [Concomitant]
     Route: 048

REACTIONS (1)
  - Malignant neoplasm progression [Fatal]
